FAERS Safety Report 20625486 (Version 1)
Quarter: 2022Q1

REPORT INFORMATION
  Report Type: Spontaneous
  Country: GB (occurrence: GB)
  Receive Date: 20220323
  Receipt Date: 20220323
  Transmission Date: 20220423
  Serious: Yes (Other)
  Sender: FDA-Public Use
  Company Number: GB-MHRA-MED-202203112119299960-HCIO8

PATIENT
  Age: 21 Year
  Sex: Female
  Weight: 62 kg

DRUGS (1)
  1. FLUOXETINE [Suspect]
     Active Substance: FLUOXETINE HYDROCHLORIDE
     Indication: Anxiety
     Dosage: 40 MILLIGRAM, ONCE A DAY
     Route: 065
     Dates: start: 202110

REACTIONS (1)
  - Night sweats [Not Recovered/Not Resolved]

NARRATIVE: CASE EVENT DATE: 20220116
